FAERS Safety Report 9722936 (Version 1)
Quarter: 2013Q4

REPORT INFORMATION
  Report Type: Spontaneous
  Country: US (occurrence: None)
  Receive Date: 20131126
  Receipt Date: 20131126
  Transmission Date: 20140711
  Serious: Yes (Other)
  Sender: FDA-Public Use
  Company Number: 2012US000793

PATIENT
  Age: 96 Year
  Sex: Female
  Weight: 69.2 kg

DRUGS (11)
  1. PONATINIB [Suspect]
     Indication: CHRONIC MYELOID LEUKAEMIA
     Route: 048
     Dates: start: 20101101, end: 20120718
  2. CALCIUM (CALCIUM) [Concomitant]
  3. ESTRADIOL [Concomitant]
  4. FUROSEMIDE (FUROSEMIDE) [Concomitant]
  5. LEVOTHYROXINE [Concomitant]
  6. LUMIGAN (BIMATOPROST) [Concomitant]
  7. MULTIVITAMIN (VITAMINS NOS) [Concomitant]
  8. OMEGA 3 (FISH OIL) [Concomitant]
  9. POTASSIUM CHLORIDE (POTASSIUM CHLORIDE) [Concomitant]
  10. SENOKOT (SENNA ALEXANDRINA FRUIT) [Concomitant]
  11. VITAMIN D (VITAMIN D) [Concomitant]

REACTIONS (5)
  - Peripheral ischaemia [None]
  - Femoral artery occlusion [None]
  - Peripheral arterial occlusive disease [None]
  - Peripheral arterial occlusive disease [None]
  - Thrombocytopenia [None]
